FAERS Safety Report 21783273 (Version 1)
Quarter: 2022Q4

REPORT INFORMATION
  Report Type: Report from Study
  Country: FR (occurrence: None)
  Receive Date: 20221227
  Receipt Date: 20221227
  Transmission Date: 20230113
  Serious: Yes (Death)
  Sender: FDA-Public Use
  Company Number: 2022A416710

PATIENT
  Age: 810 Month
  Sex: Male
  Weight: 86 kg

DRUGS (1)
  1. EVUSHELD [Suspect]
     Active Substance: CILGAVIMAB\TIXAGEVIMAB
     Indication: COVID-19 prophylaxis
     Dosage: DOSE UNKNOWN-1ST DOSE ONCE/SINGLE ADMINISTRATION
     Route: 030
     Dates: start: 20220510, end: 20220510

REACTIONS (1)
  - Complications of transplanted heart [Fatal]

NARRATIVE: CASE EVENT DATE: 20220729
